FAERS Safety Report 8809310 (Version 1)
Quarter: 2012Q4

REPORT INFORMATION
  Report Type: Spontaneous
  Country: US (occurrence: None)
  Receive Date: 20120924
  Receipt Date: 20120924
  Transmission Date: 20130627
  Serious: Yes (Other)
  Sender: FDA-Public Use
  Company Number: None

PATIENT
  Age: 49 Year
  Sex: Female
  Weight: 80.74 kg

DRUGS (2)
  1. UROGESIC BLUE [Suspect]
     Indication: SHORT-TERM MEMORY LOSS
     Dosage: 1 tab 4 times a day as needed
     Route: 048
     Dates: start: 20120920, end: 20120921
  2. UROGESIC BLUE [Suspect]
     Indication: DYSURIA
     Dosage: 1 tab 4 times a day as needed
     Route: 048
     Dates: start: 20120920, end: 20120921

REACTIONS (3)
  - Gastrointestinal disorder [None]
  - Oesophageal spasm [None]
  - Dry mouth [None]
